FAERS Safety Report 25645665 (Version 1)
Quarter: 2025Q3

REPORT INFORMATION
  Report Type: Report from Study
  Country: SG (occurrence: SG)
  Receive Date: 20250805
  Receipt Date: 20250805
  Transmission Date: 20251020
  Serious: Yes (Hospitalization)
  Sender: EISAI
  Company Number: SG-Eisai-EC-2025-193821

PATIENT
  Age: 81 Year
  Sex: Female

DRUGS (6)
  1. LENVATINIB [Suspect]
     Active Substance: LENVATINIB
     Indication: Breast cancer
     Dates: start: 20250516, end: 20250718
  2. LENVATINIB [Suspect]
     Active Substance: LENVATINIB
     Dates: start: 20250722
  3. PEMBROLIZUMAB [Suspect]
     Active Substance: PEMBROLIZUMAB
     Indication: Breast cancer
     Dates: start: 20250528
  4. ASPIRIN [Concomitant]
     Active Substance: ASPIRIN
     Indication: Myocardial ischaemia
     Dates: start: 2021
  5. ATORVASTATIN [Concomitant]
     Active Substance: ATORVASTATIN
     Indication: Hypertension
     Dates: start: 2021
  6. MORPHINE SULFATE [Concomitant]
     Active Substance: MORPHINE SULFATE
     Indication: Pain
     Dates: start: 2025

REACTIONS (1)
  - Pulmonary embolism [Recovering/Resolving]

NARRATIVE: CASE EVENT DATE: 20250718
